FAERS Safety Report 4787250-X (Version None)
Quarter: 2005Q4

REPORT INFORMATION
  Report Type: 
  Country: None (occurrence: None)
  Receive Date: 20051004
  Receipt Date: 20050927
  Transmission Date: 20060501
  Serious: Yes (Hospitalization)
  Sender: FDA-Public Use
  Company Number: PHBS2005DK14276

PATIENT
  Age: 16 Year
  Sex: Female
  Weight: 70 kg

DRUGS (7)
  1. LEPONEX [Suspect]
     Indication: SCHIZOPHRENIA
     Dosage: 550 MG/D
     Route: 048
     Dates: start: 20040511, end: 20050131
  2. ZYPREXA [Concomitant]
     Dates: start: 20041201
  3. NOZINAN [Concomitant]
     Dates: start: 20041001, end: 20050628
  4. DISIPAL [Concomitant]
     Dates: start: 20041001
  5. ZOLPIDEM TARTRATE [Concomitant]
     Dates: start: 20050201
  6. NEOGYNON [Concomitant]
     Dates: start: 20030101
  7. MOVICOL [Concomitant]
     Dates: start: 20050610, end: 20050628

REACTIONS (1)
  - CEREBRAL VENOUS THROMBOSIS [None]
